FAERS Safety Report 24692040 (Version 1)
Quarter: 2024Q4

REPORT INFORMATION
  Report Type: Spontaneous
  Country: US (occurrence: None)
  Receive Date: 20241203
  Receipt Date: 20241203
  Transmission Date: 20250115
  Serious: No
  Sender: Public
  Company Number: None

PATIENT
  Sex: 0

DRUGS (2)
  1. AMITRIPTYLINE [Suspect]
     Active Substance: AMITRIPTYLINE
  2. ELETRIPTAN [Suspect]
     Active Substance: ELETRIPTAN

REACTIONS (7)
  - Drug ineffective [None]
  - Cough [None]
  - Muscular weakness [None]
  - Dizziness [None]
  - Impaired work ability [None]
  - Fatigue [None]
  - Drug intolerance [None]

NARRATIVE: CASE EVENT DATE: 20241203
